FAERS Safety Report 25585831 (Version 1)
Quarter: 2025Q3

REPORT INFORMATION
  Report Type: Spontaneous
  Country: EU (occurrence: EU)
  Receive Date: 20250721
  Receipt Date: 20250721
  Transmission Date: 20251021
  Serious: Yes (Hospitalization, Other)
  Sender: MYLAN
  Company Number: EU-PFIZER INC-PV202500076219

PATIENT
  Age: 73 Year
  Sex: Male

DRUGS (8)
  1. ATORVASTATIN [Suspect]
     Active Substance: ATORVASTATIN
     Indication: Chronic kidney disease
     Dosage: UNK UNK, QD (40, 1X1)
  2. TAMSULOSIN [Suspect]
     Active Substance: TAMSULOSIN
     Indication: Chronic kidney disease
     Dosage: UNK UNK, QD, (1X1)
  3. BISOPROLOL [Suspect]
     Active Substance: BISOPROLOL
     Indication: Chronic kidney disease
     Dosage: UNK UNK, QD, (2.5, 1X1)
  4. SPIRONOLACTONE [Suspect]
     Active Substance: SPIRONOLACTONE
     Indication: Chronic kidney disease
     Dosage: UNK UNK, QD, (50 1X1)
  5. RAMIPRIL [Suspect]
     Active Substance: RAMIPRIL
     Indication: Product used for unknown indication
     Dosage: UNK UNK, QD, 5, 1X1
  6. ALLOPURINOL [Suspect]
     Active Substance: ALLOPURINOL
     Indication: Chronic kidney disease
     Dosage: UNK UNK, QD (100, 1X1)
  7. FUROSEMIDE [Suspect]
     Active Substance: FUROSEMIDE
     Indication: Chronic kidney disease
  8. FUROSEMIDE [Suspect]
     Active Substance: FUROSEMIDE
     Dosage: UNK UNK, TID, (40, 1X3)

REACTIONS (3)
  - Renal impairment [Unknown]
  - Sepsis [Unknown]
  - Cardiac failure [Unknown]
